FAERS Safety Report 14073368 (Version 2)
Quarter: 2017Q4

REPORT INFORMATION
  Report Type: Spontaneous
  Country: FR (occurrence: FR)
  Receive Date: 20171011
  Receipt Date: 20171024
  Transmission Date: 20180321
  Serious: Yes (Hospitalization)
  Sender: FDA-Public Use
  Company Number: FR-ROCHE-2003277

PATIENT
  Age: 8 Year
  Sex: Female
  Weight: 26.3 kg

DRUGS (12)
  1. VALIUM [Suspect]
     Active Substance: DIAZEPAM
     Indication: PRODUCT USED FOR UNKNOWN INDICATION
     Route: 054
  2. RIVOTRIL [Suspect]
     Active Substance: CLONAZEPAM
     Dosage: 21 DOSAGE F ORMS
     Route: 048
     Dates: start: 20170912, end: 20170912
  3. RIVOTRIL [Suspect]
     Active Substance: CLONAZEPAM
     Route: 048
     Dates: start: 20170923, end: 20170928
  4. RIVOTRIL [Suspect]
     Active Substance: CLONAZEPAM
     Indication: EPILEPSY
     Dosage: 24 DOSAGE FORMS
     Route: 048
     Dates: start: 20170911, end: 20170911
  5. PERAMPANEL [Concomitant]
     Active Substance: PERAMPANEL
     Indication: GENERALISED TONIC-CLONIC SEIZURE
     Route: 048
     Dates: start: 20170905
  6. LEVETIRACETAM. [Concomitant]
     Active Substance: LEVETIRACETAM
  7. VALPROATE SODIUM. [Concomitant]
     Active Substance: VALPROATE SODIUM
  8. RIVOTRIL [Suspect]
     Active Substance: CLONAZEPAM
     Dosage: 9 DOSAGE FORMS
     Route: 048
     Dates: start: 20170915, end: 20170919
  9. RIVOTRIL [Suspect]
     Active Substance: CLONAZEPAM
     Indication: EPILEPSY
     Route: 042
     Dates: start: 20170910, end: 20170910
  10. RIVOTRIL [Suspect]
     Active Substance: CLONAZEPAM
     Dosage: 15 DOSAGE FOR MS
     Route: 048
     Dates: start: 20170913, end: 20170914
  11. RIVOTRIL [Suspect]
     Active Substance: CLONAZEPAM
     Route: 048
     Dates: start: 20170920, end: 20170923
  12. MELATONIN [Concomitant]
     Active Substance: MELATONIN

REACTIONS (4)
  - Incorrect route of drug administration [Unknown]
  - Ataxia [Unknown]
  - Drug ineffective [Unknown]
  - Somnolence [Recovered/Resolved]

NARRATIVE: CASE EVENT DATE: 20170910
